FAERS Safety Report 25719166 (Version 5)
Quarter: 2025Q4

REPORT INFORMATION
  Report Type: Spontaneous
  Country: US (occurrence: US)
  Receive Date: 20250823
  Receipt Date: 20251205
  Transmission Date: 20260118
  Serious: Yes (Hospitalization, Other)
  Sender: AMGEN
  Company Number: US-AMGEN-USASP2025164436

PATIENT
  Age: 78 Year
  Sex: Female

DRUGS (4)
  1. REPATHA [Suspect]
     Active Substance: EVOLOCUMAB
     Indication: Coronary artery disease
     Dosage: 140 MILLIGRAM PER MILLILITRE, Q2WK
     Route: 058
     Dates: start: 202205
  2. REPATHA [Suspect]
     Active Substance: EVOLOCUMAB
     Indication: Thrombosis
     Dosage: UNK
     Route: 058
  3. REPATHA [Suspect]
     Active Substance: EVOLOCUMAB
     Indication: Blood cholesterol abnormal
     Dosage: UNK
     Route: 058
  4. REPATHA [Suspect]
     Active Substance: EVOLOCUMAB
     Indication: Cardiac disorder

REACTIONS (6)
  - Hip fracture [Recovered/Resolved]
  - Visual impairment [Unknown]
  - Dyspnoea [Unknown]
  - Device difficult to use [Unknown]
  - Drug dose omission by device [Unknown]
  - Intercepted product storage error [Unknown]

NARRATIVE: CASE EVENT DATE: 20240101
